FAERS Safety Report 16642443 (Version 1)
Quarter: 2019Q3

REPORT INFORMATION
  Report Type: Report from Study
  Country: None (occurrence: US)
  Receive Date: 20190729
  Receipt Date: 20190729
  Transmission Date: 20191004
  Serious: Yes (Hospitalization)
  Sender: FDA-Public Use
  Company Number: US-ABBVIE-19K-163-2864618-00

PATIENT
  Age: 62 Year
  Sex: Male

DRUGS (2)
  1. CREON [Suspect]
     Active Substance: PANCRELIPASE AMYLASE\PANCRELIPASE LIPASE\PANCRELIPASE PROTEASE
     Indication: NAUSEA
     Dosage: EVERY SIX HOURS ON THE TONGUE AND ALLOWED TO DISSOLVE
     Route: 065
  2. ONDANSETRON [Concomitant]
     Active Substance: ONDANSETRON
     Indication: PRODUCT USED FOR UNKNOWN INDICATION
     Route: 048
     Dates: start: 20190716

REACTIONS (3)
  - Cholecystectomy [Unknown]
  - Abdominal pain upper [Unknown]
  - Adverse event [Unknown]

NARRATIVE: CASE EVENT DATE: 201905
